FAERS Safety Report 6570745-6 (Version None)
Quarter: 2010Q1

REPORT INFORMATION
  Report Type: 
  Country: None (occurrence: None)
  Receive Date: 20100204
  Receipt Date: 20100128
  Transmission Date: 20100710
  Serious: Yes (Other)
  Sender: FDA-Public Use
  Company Number: D0066285A

PATIENT
  Sex: Male

DRUGS (1)
  1. RANITIDINE HCL [Suspect]
     Dosage: 300MG TWICE PER DAY
     Route: 048

REACTIONS (3)
  - ASPARTATE AMINOTRANSFERASE INCREASED [None]
  - BLOOD CREATINE INCREASED [None]
  - HYPERKALAEMIA [None]
